FAERS Safety Report 9046402 (Version 1)
Quarter: 2013Q1

REPORT INFORMATION
  Report Type: Spontaneous
  Country: US (occurrence: None)
  Receive Date: 20130128
  Receipt Date: 20130128
  Transmission Date: 20140127
  Serious: Yes (Hospitalization)
  Sender: FDA-Public Use
  Company Number: None

PATIENT
  Age: 65 Year
  Sex: Male
  Weight: 61.69 kg

DRUGS (1)
  1. SOLU-MEDRO 125 MG PFIZER [Suspect]

REACTIONS (1)
  - Pancreatitis [None]
